FAERS Safety Report 8246921 (Version 2)
Quarter: 2014Q3

REPORT INFORMATION
  Report Type: Spontaneous
  Country: MA (occurrence: CG)
  Receive Date: 20111116
  Receipt Date: 20140911
  Transmission Date: 20150326
  Serious: Yes (Other)
  Sender: FDA-Public Use
  Company Number: MA-ROCHE-1012968

PATIENT
  Age: 31 Year
  Sex: Male

DRUGS (1)
  1. LARIAM [Suspect]
     Active Substance: MEFLOQUINE HYDROCHLORIDE
     Indication: MALARIA PROPHYLAXIS
     Route: 065

REACTIONS (2)
  - Psychotic behaviour [Recovered/Resolved]
  - Mania [Recovered/Resolved]
